FAERS Safety Report 6210954-9 (Version None)
Quarter: 2009Q2

REPORT INFORMATION
  Report Type: 
  Country: None (occurrence: None)
  Receive Date: 20090528
  Receipt Date: 20090528
  Transmission Date: 20091009
  Serious: No
  Sender: FDA-Public Use
  Company Number: None

PATIENT
  Sex: Female
  Weight: 66.2252 kg

DRUGS (1)
  1. BUPORPION HCL SR TABLETS 150 MG. MEDCO [Suspect]
     Indication: DEPRESSION
     Dosage: 150 MG 2 TIMES DAILY PO
     Route: 048
     Dates: start: 20070101, end: 20090526

REACTIONS (5)
  - ABNORMAL BEHAVIOUR [None]
  - DEPRESSION [None]
  - FEELING ABNORMAL [None]
  - LOSS OF EMPLOYMENT [None]
  - PRODUCT SUBSTITUTION ISSUE [None]
